FAERS Safety Report 9644466 (Version 1)
Quarter: 2013Q4

REPORT INFORMATION
  Report Type: Spontaneous
  Country: CN (occurrence: CN)
  Receive Date: 20131025
  Receipt Date: 20131025
  Transmission Date: 20140711
  Serious: Yes (Other)
  Sender: FDA-Public Use
  Company Number: CN-ASTRAZENECA-2013SE76648

PATIENT
  Age: 20 Year
  Sex: Male

DRUGS (3)
  1. OMEPRAZOLE [Suspect]
  2. METHYLPREDNISOLONE [Concomitant]
  3. CETIRIZINE MIZOLASTINE [Concomitant]

REACTIONS (3)
  - Linear IgA disease [Unknown]
  - Alanine aminotransferase increased [Unknown]
  - Blood bilirubin increased [Unknown]
